FAERS Safety Report 7860133-4 (Version None)
Quarter: 2011Q4

REPORT INFORMATION
  Report Type: 
  Country: None (occurrence: None)
  Receive Date: 20111027
  Receipt Date: 20111020
  Transmission Date: 20120403
  Serious: Yes (Death)
  Sender: FDA-Public Use
  Company Number: US-AMGEN-USASP2011054576

PATIENT
  Age: 76 Year
  Sex: Female
  Weight: 64.762 kg

DRUGS (1)
  1. NPLATE [Suspect]
     Indication: IDIOPATHIC THROMBOCYTOPENIC PURPURA
     Dosage: 648 MUG, UNK
     Dates: start: 20100414, end: 20101119

REACTIONS (1)
  - DEATH [None]
